FAERS Safety Report 5315162-1 (Version None)
Quarter: 2007Q2

REPORT INFORMATION
  Report Type: 
  Country: None (occurrence: None)
  Receive Date: 20070502
  Receipt Date: 20070420
  Transmission Date: 20071010
  Serious: Yes (Other)
  Sender: FDA-Public Use
  Company Number: SE-PFIZER INC-2007018119

PATIENT
  Sex: Female

DRUGS (2)
  1. SUTENT [Suspect]
     Indication: GASTROINTESTINAL STROMAL TUMOUR
     Route: 048
  2. OMEPRAZOLE [Concomitant]

REACTIONS (4)
  - BRADYCARDIA [None]
  - OEDEMA MOUTH [None]
  - PLATELET COUNT DECREASED [None]
  - THROAT IRRITATION [None]
